FAERS Safety Report 19251782 (Version 1)
Quarter: 2021Q2

REPORT INFORMATION
  Report Type: Spontaneous
  Country: US (occurrence: US)
  Receive Date: 20210512
  Receipt Date: 20210512
  Transmission Date: 20210717
  Serious: No
  Sender: FDA-Public Use
  Company Number: US-INSUD PHARMA-2104US00428

PATIENT

DRUGS (1)
  1. VIENVA TM [Suspect]
     Active Substance: ETHINYL ESTRADIOL\LEVONORGESTREL
     Indication: PRODUCT USED FOR UNKNOWN INDICATION
     Dosage: 1 TABLET DAILY
     Route: 048
     Dates: start: 202103, end: 20210410

REACTIONS (2)
  - Intermenstrual bleeding [Not Recovered/Not Resolved]
  - Intentional dose omission [Unknown]

NARRATIVE: CASE EVENT DATE: 20210410
